FAERS Safety Report 16895146 (Version 1)
Quarter: 2019Q4

REPORT INFORMATION
  Report Type: Spontaneous
  Country: US (occurrence: US)
  Receive Date: 20191007
  Receipt Date: 20191007
  Transmission Date: 20200122
  Serious: Yes (Disabling)
  Sender: FDA-Public Use
  Company Number: None

PATIENT
  Age: 61 Year
  Sex: Female
  Weight: 74.25 kg

DRUGS (1)
  1. SUPREP BOWEL PREP [Suspect]
     Active Substance: MAGNESIUM SULFATE\POTASSIUM SULFATE\SODIUM SULFATE
     Indication: BOWEL PREPARATION
     Dosage: ?          OTHER STRENGTH:SEE ABOVE;QUANTITY:2 BOTTLE;OTHER FREQUENCY:2 BOTTLS AS INSTRU;?
     Route: 048
     Dates: start: 20190918, end: 20190918

REACTIONS (6)
  - Diarrhoea [None]
  - Tinnitus [None]
  - Haemorrhoidal haemorrhage [None]
  - Proctalgia [None]
  - Anorectal swelling [None]
  - Heart rate increased [None]

NARRATIVE: CASE EVENT DATE: 20190918
